FAERS Safety Report 26207589 (Version 1)
Quarter: 2025Q4

REPORT INFORMATION
  Report Type: Spontaneous
  Country: PR (occurrence: PR)
  Receive Date: 20251229
  Receipt Date: 20251229
  Transmission Date: 20260117
  Serious: Yes (Life-Threatening, Hospitalization)
  Sender: MYLAN
  Company Number: PR-MYLANLABS-2025M1109229

PATIENT
  Age: 76 Year
  Sex: Male

DRUGS (12)
  1. VORICONAZOLE [Suspect]
     Active Substance: VORICONAZOLE
     Indication: Aspergillus infection
     Dosage: UNK
  2. VORICONAZOLE [Suspect]
     Active Substance: VORICONAZOLE
     Dosage: UNK
     Route: 065
  3. VORICONAZOLE [Suspect]
     Active Substance: VORICONAZOLE
     Dosage: UNK
     Route: 065
  4. VORICONAZOLE [Suspect]
     Active Substance: VORICONAZOLE
     Dosage: UNK
  5. VIDAZA [Suspect]
     Active Substance: AZACITIDINE
     Indication: Acute myeloid leukaemia
     Dosage: UNK, CYCLE (13 CYCLES)
  6. VIDAZA [Suspect]
     Active Substance: AZACITIDINE
     Dosage: UNK, CYCLE (13 CYCLES)
     Route: 065
  7. VIDAZA [Suspect]
     Active Substance: AZACITIDINE
     Dosage: UNK, CYCLE (13 CYCLES)
     Route: 065
  8. VIDAZA [Suspect]
     Active Substance: AZACITIDINE
     Dosage: UNK, CYCLE (13 CYCLES)
  9. VENCLEXTA [Suspect]
     Active Substance: VENETOCLAX
     Indication: Acute myeloid leukaemia
     Dosage: UNK, CYCLE (13 CYCLES)
  10. VENCLEXTA [Suspect]
     Active Substance: VENETOCLAX
     Dosage: UNK, CYCLE (13 CYCLES)
     Route: 065
  11. VENCLEXTA [Suspect]
     Active Substance: VENETOCLAX
     Dosage: UNK, CYCLE (13 CYCLES)
     Route: 065
  12. VENCLEXTA [Suspect]
     Active Substance: VENETOCLAX
     Dosage: UNK, CYCLE (13 CYCLES)

REACTIONS (4)
  - Drug ineffective [Unknown]
  - Respiratory failure [Unknown]
  - Pulmonary haemorrhage [Unknown]
  - Lung consolidation [Unknown]
